FAERS Safety Report 23159075 (Version 2)
Quarter: 2023Q4

REPORT INFORMATION
  Report Type: Spontaneous
  Country: CN (occurrence: CN)
  Receive Date: 20231108
  Receipt Date: 20231110
  Transmission Date: 20240109
  Serious: Yes (Hospitalization)
  Sender: FDA-Public Use
  Company Number: CN-002147023-NVSC2023CN234973

PATIENT
  Age: 71 Year
  Sex: Male

DRUGS (5)
  1. CYCLOSPORINE [Suspect]
     Active Substance: CYCLOSPORINE
     Indication: Aplastic anaemia
     Dosage: 50 MG, QD
     Route: 048
     Dates: start: 20230829, end: 20230829
  2. VORICONAZOLE [Suspect]
     Active Substance: VORICONAZOLE
     Indication: Aplastic anaemia
     Dosage: 0.36 G, BID
     Route: 042
     Dates: start: 20230829, end: 20230830
  3. VORICONAZOLE [Suspect]
     Active Substance: VORICONAZOLE
     Indication: Agranulocytosis
  4. VORICONAZOLE [Suspect]
     Active Substance: VORICONAZOLE
     Indication: Pneumonia
  5. SODIUM CHLORIDE [Concomitant]
     Active Substance: SODIUM CHLORIDE
     Indication: Aplastic anaemia
     Dosage: 100 ML, BID
     Route: 042
     Dates: start: 20230829, end: 20230830

REACTIONS (6)
  - Liver injury [Recovering/Resolving]
  - Jaundice [Recovering/Resolving]
  - Decreased appetite [Not Recovered/Not Resolved]
  - Nausea [Not Recovered/Not Resolved]
  - Product use in unapproved indication [Unknown]
  - Coagulopathy [Unknown]

NARRATIVE: CASE EVENT DATE: 20230904
